FAERS Safety Report 19074882 (Version 1)
Quarter: 2021Q1

REPORT INFORMATION
  Report Type: Report from Study
  Country: None (occurrence: US)
  Receive Date: 20210331
  Receipt Date: 20210331
  Transmission Date: 20210420
  Serious: Yes (Hospitalization)
  Sender: FDA-Public Use
  Company Number: US-ABBVIE-21K-163-3827835-00

PATIENT
  Age: 58 Year
  Sex: Female
  Weight: 53.57 kg

DRUGS (9)
  1. HUMIRA [Suspect]
     Active Substance: ADALIMUMAB
     Indication: UVEITIS
     Route: 058
     Dates: start: 2010, end: 202005
  2. CYCLOGYL [Concomitant]
     Active Substance: CYCLOPENTOLATE HYDROCHLORIDE
     Indication: UVEITIS
  3. HUMIRA [Suspect]
     Active Substance: ADALIMUMAB
     Route: 058
     Dates: start: 202008, end: 202101
  4. COVID?19 VACCINE [Concomitant]
     Indication: COVID-19 IMMUNISATION
     Dosage: PFIZER
     Route: 030
     Dates: start: 20210121, end: 20210121
  5. HUMIRA [Suspect]
     Active Substance: ADALIMUMAB
     Indication: ANKYLOSING SPONDYLITIS
     Route: 058
     Dates: start: 20200527, end: 20200812
  6. COVID?19 VACCINE [Concomitant]
     Dosage: PFIZER
     Route: 030
     Dates: start: 20210129, end: 20210129
  7. HUMIRA [Suspect]
     Active Substance: ADALIMUMAB
     Indication: UVEITIS
     Dosage: CITRATE FREE
     Route: 058
     Dates: start: 20210210
  8. HUMIRA [Suspect]
     Active Substance: ADALIMUMAB
     Indication: ANKYLOSING SPONDYLITIS
  9. CELEBREX [Concomitant]
     Active Substance: CELECOXIB
     Indication: ANKYLOSING SPONDYLITIS

REACTIONS (6)
  - Ventricular extrasystoles [Not Recovered/Not Resolved]
  - Palpitations [Not Recovered/Not Resolved]
  - Extrasystoles [Not Recovered/Not Resolved]
  - Dyspepsia [Not Recovered/Not Resolved]
  - Heart rate irregular [Not Recovered/Not Resolved]
  - Intracranial aneurysm [Recovered/Resolved]

NARRATIVE: CASE EVENT DATE: 2012
